FAERS Safety Report 25825361 (Version 1)
Quarter: 2025Q3

REPORT INFORMATION
  Report Type: Other
  Country: EU (occurrence: EU)
  Receive Date: 20250919
  Receipt Date: 20250919
  Transmission Date: 20251021
  Serious: Yes (Other)
  Sender: GLENMARK
  Company Number: EU-GLENMARK PHARMACEUTICALS-2025GMK104042

PATIENT
  Age: 16 Year
  Sex: Female
  Weight: 64 kg

DRUGS (3)
  1. MOMETASONE FUROATE [Suspect]
     Active Substance: MOMETASONE FUROATE
     Indication: Eczema
     Route: 003
     Dates: start: 20230101
  2. TRIAMCINOLONE ACETONIDE [Suspect]
     Active Substance: TRIAMCINOLONE ACETONIDE
     Indication: Eczema
     Route: 003
     Dates: start: 20050301, end: 20240212
  3. HYDROCORTISONE [Suspect]
     Active Substance: HYDROCORTISONE
     Indication: Eczema
     Route: 003
     Dates: start: 20050101

REACTIONS (3)
  - Mood swings [Not Recovered/Not Resolved]
  - Eczema [Not Recovered/Not Resolved]
  - Topical steroid withdrawal reaction [Not Recovered/Not Resolved]
